FAERS Safety Report 5319458-9 (Version None)
Quarter: 2007Q2

REPORT INFORMATION
  Report Type: 
  Country: None (occurrence: None)
  Receive Date: 20070508
  Receipt Date: 20070426
  Transmission Date: 20071010
  Serious: Yes (Other)
  Sender: FDA-Public Use
  Company Number: BR-PFIZER INC-2007030160

PATIENT
  Age: 50 Year
  Sex: Male

DRUGS (2)
  1. VFEND [Suspect]
     Indication: BRONCHOPULMONARY ASPERGILLOSIS
  2. DRUG, UNSPECIFIED [Concomitant]

REACTIONS (3)
  - CEREBELLAR HAEMORRHAGE [None]
  - DRUG ADMINISTRATION ERROR [None]
  - VISUAL FIELD DEFECT [None]
